FAERS Safety Report 12211532 (Version 1)
Quarter: 2016Q1

REPORT INFORMATION
  Report Type: Spontaneous
  Country: US (occurrence: US)
  Receive Date: 20160325
  Receipt Date: 20160325
  Transmission Date: 20160526
  Serious: Yes (Hospitalization)
  Sender: FDA-Public Use
  Company Number: US-ASTRAZENECA-2016SE30307

PATIENT

DRUGS (4)
  1. GABAPENTIN. [Concomitant]
     Active Substance: GABAPENTIN
     Indication: ANXIETY
     Dosage: UNKNOWN
     Route: 065
  2. SEROQUEL [Suspect]
     Active Substance: QUETIAPINE FUMARATE
     Route: 065
  3. SEROQUEL [Suspect]
     Active Substance: QUETIAPINE FUMARATE
     Route: 065
  4. SEROQUEL [Suspect]
     Active Substance: QUETIAPINE FUMARATE
     Route: 065

REACTIONS (16)
  - Arthritis [Unknown]
  - Hypophagia [Unknown]
  - Constipation [Unknown]
  - Malaise [Unknown]
  - Stress [Unknown]
  - Weight increased [Unknown]
  - Depression [Unknown]
  - Gait disturbance [Unknown]
  - Crying [Unknown]
  - Dry mouth [Unknown]
  - Arthralgia [Unknown]
  - Dizziness [Unknown]
  - Weight decreased [Unknown]
  - Limb discomfort [Unknown]
  - Feeling abnormal [Unknown]
  - Fatigue [Unknown]
